FAERS Safety Report 7125246-3 (Version None)
Quarter: 2010Q4

REPORT INFORMATION
  Report Type: 
  Country: None (occurrence: None)
  Receive Date: 20101129
  Receipt Date: 20101115
  Transmission Date: 20110411
  Serious: Yes (Hospitalization, Other)
  Sender: FDA-Public Use
  Company Number: DE-GENENTECH-303285

PATIENT
  Sex: Female

DRUGS (1)
  1. RANIBIZUMAB [Suspect]
     Indication: MACULAR DEGENERATION
     Dosage: UNK
     Route: 031
     Dates: start: 20090311

REACTIONS (10)
  - ANGINA PECTORIS [None]
  - CATARACT [None]
  - CONDITION AGGRAVATED [None]
  - CORONARY ARTERY STENOSIS [None]
  - EMPHYSEMA [None]
  - HYPERTENSION [None]
  - METAMORPHOPSIA [None]
  - MYOCARDIAL INFARCTION [None]
  - TACHYCARDIA [None]
  - VISUAL ACUITY REDUCED [None]
